FAERS Safety Report 12349696 (Version 3)
Quarter: 2019Q3

REPORT INFORMATION
  Report Type: Spontaneous
  Country: FR (occurrence: FR)
  Receive Date: 20160510
  Receipt Date: 20190920
  Transmission Date: 20191004
  Serious: Yes (Death, Hospitalization, Other)
  Sender: FDA-Public Use
  Company Number: FR-AUROBINDO-AUR-APL-2016-05674

PATIENT

DRUGS (7)
  1. SOLIRIS [Suspect]
     Active Substance: ECULIZUMAB
     Indication: HAEMOLYTIC URAEMIC SYNDROME
     Dosage: 900 MILLIGRAM, EVERY WEEK
     Route: 042
     Dates: start: 20130809, end: 20130830
  2. VFEND [Suspect]
     Active Substance: VORICONAZOLE
     Indication: BRONCHOPULMONARY ASPERGILLOSIS
     Dosage: 300 MILLIGRAM, ONCE A DAY
     Route: 065
     Dates: start: 20130902
  3. IMIPENEM AND CILASTATIN [Suspect]
     Active Substance: CILASTATIN SODIUM\IMIPENEM
     Indication: INFECTION
     Dosage: UNK
     Route: 065
     Dates: start: 20130805
  4. SOLIRIS [Suspect]
     Active Substance: ECULIZUMAB
     Indication: ESCHERICHIA TEST POSITIVE
     Dosage: UNK
     Route: 065
  5. VFEND [Suspect]
     Active Substance: VORICONAZOLE
     Indication: BRONCHOPULMONARY ASPERGILLOSIS
  6. FLUCONAZOLE ARROW [Suspect]
     Active Substance: FLUCONAZOLE
     Indication: FUNGAL INFECTION
     Dosage: UNK
     Route: 065
     Dates: start: 20130805
  7. SOLIRIS [Suspect]
     Active Substance: ECULIZUMAB
     Indication: OFF LABEL USE
     Dosage: UNK
     Route: 065

REACTIONS (8)
  - Bronchopulmonary aspergillosis [Unknown]
  - Nervous system disorder [Fatal]
  - Thrombotic microangiopathy [Unknown]
  - Off label use [Unknown]
  - Hemiplegia [Fatal]
  - Cardio-respiratory arrest [Fatal]
  - Cholestasis [Unknown]
  - Tonic convulsion [Fatal]

NARRATIVE: CASE EVENT DATE: 20130812
